FAERS Safety Report 6652896-0 (Version None)
Quarter: 2010Q1

REPORT INFORMATION
  Report Type: 
  Country: None (occurrence: None)
  Receive Date: 20100326
  Receipt Date: 20100322
  Transmission Date: 20100710
  Serious: Yes (Death)
  Sender: FDA-Public Use
  Company Number: GB-ASTRAZENECA-2010SE12365

PATIENT
  Age: 61 Year
  Sex: Male
  Weight: 119 kg

DRUGS (5)
  1. PROPOFOL [Suspect]
     Indication: INDUCTION OF ANAESTHESIA
     Route: 042
     Dates: start: 20100212, end: 20100212
  2. FENTANYL [Suspect]
     Indication: ENDOTRACHEAL INTUBATION
     Route: 042
     Dates: start: 20100212, end: 20100212
  3. ATRACURIUM BESYLATE [Suspect]
     Indication: ENDOTRACHEAL INTUBATION
     Route: 042
     Dates: start: 20100212, end: 20100212
  4. AMPICILLIN SODIUM/SULBACTAM SODIUM [Suspect]
     Indication: ANTIBIOTIC PROPHYLAXIS
     Route: 042
     Dates: start: 20100212, end: 20100212
  5. TIOTROPIUM BROMIDE [Concomitant]

REACTIONS (1)
  - ANAPHYLACTIC SHOCK [None]
